FAERS Safety Report 19912002 (Version 1)
Quarter: 2021Q4

REPORT INFORMATION
  Report Type: Spontaneous
  Country: US (occurrence: US)
  Receive Date: 20211004
  Receipt Date: 20211004
  Transmission Date: 20220303
  Serious: No
  Sender: FDA-Public Use
  Company Number: None

PATIENT
  Age: 40 Year
  Sex: Male

DRUGS (1)
  1. UBROGEPANT [Suspect]
     Active Substance: UBROGEPANT
     Indication: Migraine with aura
     Route: 048
     Dates: start: 20210503, end: 20210813

REACTIONS (4)
  - Confusional state [None]
  - Muscle spasms [None]
  - Dysarthria [None]
  - Seizure [None]

NARRATIVE: CASE EVENT DATE: 20210813
